FAERS Safety Report 7364182-4 (Version None)
Quarter: 2011Q1

REPORT INFORMATION
  Report Type: 
  Country: None (occurrence: None)
  Receive Date: 20110321
  Receipt Date: 20110311
  Transmission Date: 20110831
  Serious: No
  Sender: FDA-Public Use
  Company Number: US-PFIZER INC-2007036091

PATIENT

DRUGS (1)
  1. NEURONTIN [Suspect]
     Indication: ELECTROCUTION
     Dates: start: 20020101

REACTIONS (1)
  - AMNESIA [None]
